FAERS Safety Report 17383571 (Version 1)
Quarter: 2020Q1

REPORT INFORMATION
  Report Type: Spontaneous
  Country: US (occurrence: US)
  Receive Date: 20200206
  Receipt Date: 20200206
  Transmission Date: 20200409
  Serious: No
  Sender: FDA-Public Use
  Company Number: US-ABBVIE-19K-163-2989278-00

PATIENT
  Sex: Female

DRUGS (2)
  1. HUMIRA [Suspect]
     Active Substance: ADALIMUMAB
     Indication: CROHN^S DISEASE
     Route: 058
  2. ANAKINRA [Concomitant]
     Active Substance: ANAKINRA
     Indication: HIDRADENITIS

REACTIONS (3)
  - Drug ineffective [Unknown]
  - Hidradenitis [Recovering/Resolving]
  - Metastatic cutaneous Crohn^s disease [Unknown]
